FAERS Safety Report 5768384-X (Version None)
Quarter: 2008Q2

REPORT INFORMATION
  Report Type: 
  Country: None (occurrence: None)
  Receive Date: 20080612
  Receipt Date: 20080302
  Transmission Date: 20081010
  Serious: No
  Sender: FDA-Public Use
  Company Number: US-ABBOTT-08P-163-0440881-00

PATIENT
  Sex: Female
  Weight: 99.88 kg

DRUGS (8)
  1. HUMIRA [Suspect]
     Indication: CROHN'S DISEASE
     Route: 058
     Dates: start: 20080201, end: 20080201
  2. HUMIRA [Suspect]
     Dates: start: 20080208, end: 20080208
  3. HUMIRA [Suspect]
     Dates: start: 20080215
  4. HORMONE REPLACEMENT PATCH [Concomitant]
     Indication: DRUG USE FOR UNKNOWN INDICATION
     Route: 062
  5. MESALAMINE [Concomitant]
     Indication: CROHN'S DISEASE
  6. OXYCODONE HYDROCHLORIDE [Concomitant]
     Indication: PAIN
  7. DEXTROPROPOXYPHENE HYDROCHLORIDE [Concomitant]
     Indication: PAIN
  8. DULOXETINE HYDROCHLORIDE [Concomitant]
     Indication: DRUG USE FOR UNKNOWN INDICATION

REACTIONS (4)
  - DRUG INEFFECTIVE [None]
  - NASOPHARYNGITIS [None]
  - PYREXIA [None]
  - UPPER RESPIRATORY TRACT CONGESTION [None]
